FAERS Safety Report 4632490-3 (Version None)
Quarter: 2005Q2

REPORT INFORMATION
  Report Type: 
  Country: None (occurrence: None)
  Receive Date: 20050411
  Receipt Date: 20050404
  Transmission Date: 20051028
  Serious: Yes (Other)
  Sender: FDA-Public Use
  Company Number: US-ABBOTT-05P-163-0296125-00

PATIENT
  Sex: Female
  Weight: 54.48 kg

DRUGS (6)
  1. SYNTHROID [Suspect]
     Indication: AUTOIMMUNE THYROIDITIS
     Route: 048
     Dates: start: 20030101, end: 20040301
  2. SYNTHROID [Suspect]
     Route: 048
     Dates: start: 20040301, end: 20040501
  3. SYNTHROID [Suspect]
     Route: 048
     Dates: start: 20050101
  4. SYNTHROID [Suspect]
     Route: 048
     Dates: start: 19940101, end: 20030101
  5. LIOTHYRONINE SODIUM [Concomitant]
     Indication: AUTOIMMUNE THYROIDITIS
     Route: 048
     Dates: start: 20050101
  6. THYROID TAB [Concomitant]
     Indication: AUTOIMMUNE THYROIDITIS
     Route: 048
     Dates: start: 20040601, end: 20041201

REACTIONS (8)
  - ANTINUCLEAR ANTIBODY POSITIVE [None]
  - ARTHRALGIA [None]
  - CARPAL TUNNEL SYNDROME [None]
  - FATIGUE [None]
  - OEDEMA PERIPHERAL [None]
  - OSTEOARTHRITIS [None]
  - RAYNAUD'S PHENOMENON [None]
  - WEIGHT DECREASED [None]
